FAERS Safety Report 11209598 (Version 2)
Quarter: 2015Q2

REPORT INFORMATION
  Report Type: Spontaneous
  Country: FR (occurrence: FR)
  Receive Date: 20150622
  Receipt Date: 20150625
  Transmission Date: 20150821
  Serious: Yes (Other)
  Sender: FDA-Public Use
  Company Number: FR-GUERBET LLC-1040114

PATIENT
  Age: 53 Year
  Sex: Male

DRUGS (4)
  1. DOTAREM [Suspect]
     Active Substance: GADOTERATE MEGLUMINE
     Dates: start: 20150612, end: 20150612
  2. POLARAMINE [Interacting]
     Active Substance: DEXCHLORPHENIRAMINE MALEATE
     Dates: start: 20150612, end: 20150612
  3. METHYLPREDNISOLONE. [Interacting]
     Active Substance: METHYLPREDNISOLONE
     Dates: start: 20150612, end: 20150612
  4. ADRENALINE [Interacting]
     Active Substance: EPINEPHRINE
     Route: 058
     Dates: start: 20150612, end: 20150612

REACTIONS (9)
  - Generalised erythema [Recovered/Resolved]
  - Urticaria [Recovered/Resolved]
  - Pharyngeal oedema [Recovered/Resolved]
  - Paraesthesia oral [Recovered/Resolved]
  - Shock [Recovered/Resolved]
  - Bronchospasm [Recovered/Resolved]
  - Dyspnoea [Recovered/Resolved]
  - Hypersensitivity [Recovered/Resolved]
  - Dizziness [Recovered/Resolved]

NARRATIVE: CASE EVENT DATE: 20150612
